FAERS Safety Report 17227909 (Version 1)
Quarter: 2019Q4

REPORT INFORMATION
  Report Type: Spontaneous
  Country: US (occurrence: US)
  Receive Date: 20191209
  Receipt Date: 20191209
  Transmission Date: 20200122
  Serious: Yes (Life-Threatening, Hospitalization)
  Sender: FDA-Public Use
  Company Number: None

PATIENT
  Age: 84 Year
  Sex: Male

DRUGS (2)
  1. SULFAMETHOXAZOLE/TRIMETHOPRIM SULFAMETHOXAZOLE 80MG/TRIMETHOPRIM 16MG) [Suspect]
     Active Substance: SULFAMETHOXAZOLE\TRIMETHOPRIM
     Indication: NOCARDIOSIS
     Route: 042
     Dates: start: 20191028, end: 20191105
  2. SULFAMETHIZOLE/TRIMETHOPRIM (SULFAMETHIZOLE 800MG/TRIMETHOPRIM 160MG TAB) [Suspect]
     Active Substance: SULFAMETHIZOLE\TRIMETHOPRIM
     Indication: NOCARDIOSIS
     Route: 048
     Dates: start: 20191105, end: 20191114

REACTIONS (4)
  - Leukopenia [None]
  - Drug hypersensitivity [None]
  - Thrombocytopenia [None]
  - Anaemia [None]

NARRATIVE: CASE EVENT DATE: 20191108
